FAERS Safety Report 10037326 (Version 1)
Quarter: 2014Q1

REPORT INFORMATION
  Report Type: Spontaneous
  Country: US (occurrence: None)
  Receive Date: 20140306
  Receipt Date: 20140306
  Transmission Date: 20141002
  Serious: Yes (Other)
  Sender: FDA-Public Use
  Company Number: 163-21880-13063902

PATIENT
  Age: 72 Year
  Sex: Male
  Weight: 103.42 kg

DRUGS (9)
  1. REVLIMID (LENALIDOMIDE)(25 MILLIGRAM, CAPSULES) [Suspect]
     Indication: PLASMA CELL MYELOMA
     Dosage: 21 IN 21 D
     Route: 048
     Dates: start: 20130118, end: 20130614
  2. FUROSEMIDE(FUROSEMIDE) [Concomitant]
  3. LORAZEPAM(LORAZEPAM) [Concomitant]
  4. POTASSIUM CL (POTASSIUM CHLORIDE) [Concomitant]
  5. GABAPENTIN(GABAPENTIN) [Concomitant]
  6. ONDANSETRON(ONDANSETRON) [Concomitant]
  7. DEXAMETHASONE(DEXAMETHASONE) [Concomitant]
  8. HCTZ(HYDROCHLOROTHIAZIDE) [Concomitant]
  9. FLUCONAZOLE(FLUCONAZOLE) [Concomitant]

REACTIONS (1)
  - Haemoglobin decreased [None]
